FAERS Safety Report 6525315-2 (Version None)
Quarter: 2010Q1

REPORT INFORMATION
  Report Type: 
  Country: None (occurrence: None)
  Receive Date: 20100104
  Receipt Date: 20091224
  Transmission Date: 20100710
  Serious: Yes (Other)
  Sender: FDA-Public Use
  Company Number: FR-TEVA-218764ISR

PATIENT
  Age: 57 Year
  Sex: Female

DRUGS (2)
  1. ATENOLOL [Suspect]
     Indication: HYPERTENSION
     Route: 048
  2. ATENOLOL [Suspect]
     Route: 048
     Dates: start: 20070308, end: 20070422

REACTIONS (2)
  - HEPATIC CIRRHOSIS [None]
  - HEPATITIS TOXIC [None]
